FAERS Safety Report 7370438-1 (Version None)
Quarter: 2011Q1

REPORT INFORMATION
  Report Type: 
  Country: None (occurrence: None)
  Receive Date: 20110323
  Receipt Date: 20110310
  Transmission Date: 20110831
  Serious: Yes (Life-Threatening, Hospitalization)
  Sender: FDA-Public Use
  Company Number: US-BAYER-2011-023805

PATIENT
  Age: 68 Year
  Sex: Male
  Weight: 105 kg

DRUGS (5)
  1. ALEMTUZUMAB 10/1ML [Suspect]
     Indication: ACUTE LYMPHOCYTIC LEUKAEMIA
     Dosage: 0 MG, DAYS 1,4,7
     Route: 058
     Dates: start: 20110301
  2. ADDITIONAL STUDY MEDICATION [Suspect]
     Dosage: 2 MG, DAY 2
     Route: 042
     Dates: start: 20110302, end: 20110302
  3. ADDITIONAL STUDY MEDICATION [Suspect]
     Indication: ACUTE LYMPHOCYTIC LEUKAEMIA
     Dosage: 190 MG, DAY 1
     Route: 042
     Dates: start: 20110301, end: 20110301
  4. DEXAMETHASONE [Suspect]
     Indication: ACUTE LYMPHOCYTIC LEUKAEMIA
     Dosage: 84 MG TOTAL DOSE
     Dates: start: 20110301, end: 20110306
  5. ASPARAGINASE [Suspect]
     Indication: ACUTE LYMPHOCYTIC LEUKAEMIA
     Dosage: 500 IU/KG, DAY 2
     Route: 030
     Dates: start: 20110302, end: 20110302

REACTIONS (2)
  - PNEUMONIA [None]
  - HYPERGLYCAEMIA [None]
